FAERS Safety Report 17937843 (Version 1)
Quarter: 2020Q2

REPORT INFORMATION
  Report Type: Spontaneous
  Country: DE (occurrence: DE)
  Receive Date: 20200624
  Receipt Date: 20200624
  Transmission Date: 20200714
  Serious: Yes (Hospitalization)
  Sender: FDA-Public Use
  Company Number: DE-MYLANLABS-2020M1057606

PATIENT
  Age: 90 Year
  Sex: Male

DRUGS (9)
  1. IPRATROPIUMBROMID EBB [Concomitant]
     Dosage: 1.25 MILLIGRAM PER MILLILITRE BEI BEDARF
     Route: 055
  2. TRAMADOL. [Suspect]
     Active Substance: TRAMADOL
     Indication: PRODUCT USED FOR UNKNOWN INDICATION
     Dosage: 50 MILLIGRAM, QID
     Route: 048
  3. MACROGOL [Concomitant]
     Active Substance: POLYETHYLENE GLYCOLS
     Dosage: PRN
     Route: 048
  4. LATANOPROST/TIMOLOL [Concomitant]
     Active Substance: LATANOPROST\TIMOLOL
     Dosage: 0.05 | 5 MG / ML, DROPS
  5. TORASEMID [Concomitant]
     Active Substance: TORSEMIDE
     Dosage: 10 MG, 0.5-0-0-0, TABLETTEN
     Route: 048
  6. METAMIZOL                          /06276701/ [Concomitant]
     Active Substance: METAMIZOLE
     Dosage: 500 MILLIGRAM, 6XD
     Route: 048
  7. ACLIDINIUM BROMIDE W/FORMOTEROL [Concomitant]
     Dosage: 12|343 ?G, 1-0-1-0, AEROSOL DOSING
     Route: 055
  8. APIXABAN [Concomitant]
     Active Substance: APIXABAN
     Dosage: 2.5 MILLIGRAM, BID
     Route: 048
  9. SALBUTAMOL [Concomitant]
     Active Substance: ALBUTEROL
     Dosage: 1.25 MILLIGRAM PER MILLILITRE, PRN
     Route: 055

REACTIONS (2)
  - Loss of consciousness [Unknown]
  - Fall [Unknown]
